FAERS Safety Report 19584272 (Version 3)
Quarter: 2021Q4

REPORT INFORMATION
  Report Type: Report from Study
  Country: FR (occurrence: FR)
  Receive Date: 20210720
  Receipt Date: 20211221
  Transmission Date: 20220304
  Serious: Yes (Hospitalization)
  Sender: FDA-Public Use
  Company Number: FR-JNJFOC-20210724118

PATIENT
  Age: 46 Year
  Sex: Female

DRUGS (4)
  1. SPRAVATO [Suspect]
     Active Substance: ESKETAMINE
     Indication: Depression
     Dosage: TOTAL 3 DOSES
     Dates: start: 20210322, end: 20210329
  2. SPRAVATO [Suspect]
     Active Substance: ESKETAMINE
     Dosage: TOTAL 12 DOSES ?LAST DOSE PRIOR TO EVENT WAS 31-MAY-2021
     Dates: start: 20210402, end: 20210628
  3. FLUOXETINE [Concomitant]
     Active Substance: FLUOXETINE HYDROCHLORIDE
     Indication: Antidepressant therapy
     Dates: start: 20190304
  4. LITHIUM [Concomitant]
     Active Substance: LITHIUM
     Dates: start: 20200811

REACTIONS (2)
  - Depression [Not Recovered/Not Resolved]
  - Drug ineffective [Recovered/Resolved]

NARRATIVE: CASE EVENT DATE: 20210614
